FAERS Safety Report 4633284-5 (Version None)
Quarter: 2005Q2

REPORT INFORMATION
  Report Type: 
  Country: None (occurrence: None)
  Receive Date: 20050408
  Receipt Date: 20050329
  Transmission Date: 20051028
  Serious: Yes (Hospitalization)
  Sender: FDA-Public Use
  Company Number: 2005CG00637

PATIENT
  Age: 69 Year
  Sex: Female
  Weight: 65 kg

DRUGS (10)
  1. MOPRAL [Suspect]
     Dosage: 20 MG QD PO
     Route: 048
     Dates: start: 20050209, end: 20050222
  2. POLARAMINE [Suspect]
     Dosage: 15 MG QD IV
     Route: 042
     Dates: start: 20050209, end: 20050220
  3. PRIMPERAN TAB [Suspect]
     Dosage: 60 MG QD IV
     Route: 042
  4. ZOVIRAX [Suspect]
     Dosage: 2250 MG QD IV
     Route: 042
     Dates: start: 20050216, end: 20050221
  5. NEURONTIN [Suspect]
     Dosage: 300 MG QD PO
     Route: 048
     Dates: start: 20050218, end: 20050219
  6. NEURONTIN [Suspect]
     Dosage: 400 MG QD PO
     Route: 048
     Dates: start: 20050220, end: 20050220
  7. NEURONTIN [Suspect]
     Dosage: 200 MG QD PO
     Route: 048
     Dates: start: 20050221, end: 20050221
  8. ONDANSETRON [Suspect]
     Dosage: 8 MG QD
     Dates: start: 20050209, end: 20050220
  9. FRAXODI [Concomitant]
  10. FUNGIZONE [Concomitant]

REACTIONS (10)
  - ABNORMAL DREAMS [None]
  - CONFUSIONAL STATE [None]
  - DECREASED ACTIVITY [None]
  - DISORIENTATION [None]
  - HALLUCINATION, VISUAL [None]
  - HYPERSOMNIA [None]
  - INCOHERENT [None]
  - METABOLIC ENCEPHALOPATHY [None]
  - RETROGRADE AMNESIA [None]
  - SOMNOLENCE [None]
